FAERS Safety Report 7971961-9 (Version None)
Quarter: 2011Q4

REPORT INFORMATION
  Report Type: 
  Country: None (occurrence: None)
  Receive Date: 20111212
  Receipt Date: 20111206
  Transmission Date: 20120403
  Serious: Yes (Death)
  Sender: FDA-Public Use
  Company Number: FR-ASTRAZENECA-2011SE73950

PATIENT
  Sex: Male

DRUGS (6)
  1. ASPIRIN [Suspect]
     Route: 048
  2. NEBIVOLOL HCL [Suspect]
     Route: 048
  3. PLAVIX [Suspect]
     Route: 048
     Dates: start: 20080101
  4. PERINDOPRIL ERBUMINE [Suspect]
     Route: 048
  5. CRESTOR [Suspect]
     Route: 048
  6. EZETIMIBE [Suspect]
     Route: 048

REACTIONS (1)
  - BRAIN STEM HAEMORRHAGE [None]
